FAERS Safety Report 12244379 (Version 2)
Quarter: 2016Q2

REPORT INFORMATION
  Report Type: Spontaneous
  Country: US (occurrence: US)
  Receive Date: 20160407
  Receipt Date: 20160509
  Transmission Date: 20160815
  Serious: Yes (Other)
  Sender: FDA-Public Use
  Company Number: US-BEH-2016060734

PATIENT
  Age: 32 Year
  Sex: Female
  Weight: 69 kg

DRUGS (21)
  1. LORAZEPAM. [Concomitant]
     Active Substance: LORAZEPAM
  2. MAGNESIUM [Concomitant]
     Active Substance: MAGNESIUM
  3. PRIVIGEN [Suspect]
     Active Substance: HUMAN IMMUNOGLOBULIN G
     Indication: HYPOGAMMAGLOBULINAEMIA
  4. PRIVIGEN [Suspect]
     Active Substance: HUMAN IMMUNOGLOBULIN G
     Route: 042
     Dates: start: 20160205
  5. FLUCONAZOLE. [Concomitant]
     Active Substance: FLUCONAZOLE
  6. FLORAJEN3 [Concomitant]
  7. BACTRIM DS [Concomitant]
     Active Substance: SULFAMETHOXAZOLE\TRIMETHOPRIM
  8. DIPHENHYDRAMINE. [Concomitant]
     Active Substance: DIPHENHYDRAMINE
  9. ALPRAZOLAM. [Concomitant]
     Active Substance: ALPRAZOLAM
  10. PRIVIGEN [Suspect]
     Active Substance: HUMAN IMMUNOGLOBULIN G
     Route: 042
     Dates: start: 20160304
  11. OCELLA [Suspect]
     Active Substance: DROSPIRENONE\ETHINYL ESTRADIOL
  12. PROGESTERONE. [Suspect]
     Active Substance: PROGESTERONE
  13. LEVOTHYROXINE. [Concomitant]
     Active Substance: LEVOTHYROXINE
  14. PRIVIGEN [Suspect]
     Active Substance: HUMAN IMMUNOGLOBULIN G
     Indication: IMMUNODEFICIENCY COMMON VARIABLE
  15. FLAGYL [Concomitant]
     Active Substance: METRONIDAZOLE\METRONIDAZOLE HYDROCHLORIDE
  16. CEPHALEXIN. [Concomitant]
     Active Substance: CEPHALEXIN
  17. ACETAMINOPHEN. [Concomitant]
     Active Substance: ACETAMINOPHEN
  18. SODIUM CHLORIDE. [Concomitant]
     Active Substance: SODIUM CHLORIDE
  19. EPIPEN [Concomitant]
     Active Substance: EPINEPHRINE
  20. VITAMIN B COMPLEX [Concomitant]
     Active Substance: CYANOCOBALAMIN\DEXPANTHENOL\NIACINAMIDE\PYRIDOXINE HYDROCHLORIDE\RIBOFLAVIN 5^-PHOSPHATE SODIUM\THIAMINE HYDROCHLORIDE\VITAMIN B COMPLEX
  21. VITAMIN D [Concomitant]
     Active Substance: CHOLECALCIFEROL

REACTIONS (1)
  - Thrombophlebitis superficial [Recovered/Resolved]

NARRATIVE: CASE EVENT DATE: 20160302
